FAERS Safety Report 5801293-6 (Version None)
Quarter: 2008Q3

REPORT INFORMATION
  Report Type: 
  Country: None (occurrence: None)
  Receive Date: 20080707
  Receipt Date: 20080627
  Transmission Date: 20090109
  Serious: Yes (Other)
  Sender: FDA-Public Use
  Company Number: ES-JNJFOC-20080606720

PATIENT
  Sex: Female

DRUGS (3)
  1. DURAGESIC-100 [Suspect]
     Indication: CANCER PAIN
     Route: 062
     Dates: start: 20080613, end: 20080614
  2. MORPHINE [Concomitant]
     Route: 048
     Dates: end: 20080614
  3. PRIMPERAN TAB [Concomitant]
     Dates: end: 20080614

REACTIONS (3)
  - DIPLOPIA [None]
  - SOMNOLENCE [None]
  - VOMITING [None]
